FAERS Safety Report 7063404-7 (Version None)
Quarter: 2010Q4

REPORT INFORMATION
  Report Type: 
  Country: None (occurrence: None)
  Receive Date: 20101026
  Receipt Date: 20091117
  Transmission Date: 20110411
  Serious: No
  Sender: FDA-Public Use
  Company Number: US-ABBOTT-09P-163-0609677-00

PATIENT
  Sex: Female
  Weight: 79.45 kg

DRUGS (12)
  1. LUPRON DEPOT [Suspect]
     Indication: UTERINE LEIOMYOMA
     Route: 050
     Dates: start: 20080101, end: 20090701
  2. LUPRON DEPOT [Suspect]
     Indication: MENORRHAGIA
     Route: 058
     Dates: start: 20090801, end: 20091101
  3. VITAMIN D [Concomitant]
     Indication: VITAMIN SUPPLEMENTATION
     Route: 048
  4. VITAMIN B5 [Concomitant]
     Indication: VITAMIN SUPPLEMENTATION
     Dosage: UNKNOWN STRENGTH
     Route: 048
     Dates: end: 20091001
  5. SUPER B COMPLEX [Concomitant]
     Indication: VITAMIN SUPPLEMENTATION
     Route: 048
     Dates: end: 20091001
  6. FISH OIL [Concomitant]
     Indication: MEDICAL DIET
     Route: 048
     Dates: end: 20091001
  7. FINEST NATURALS PROBIOTICS [Concomitant]
     Indication: MEDICAL DIET
     Route: 048
     Dates: end: 20091001
  8. ADRENAL SUPPORT CREAM [Concomitant]
     Indication: HORMONE REPLACEMENT THERAPY
     Dosage: DHEA, CORTISOL, PREGNALIN, 7 KETO DHEA
     Route: 061
  9. PROGESTERONE [Concomitant]
     Indication: HORMONE REPLACEMENT THERAPY
     Route: 061
  10. LISINOPRIL [Concomitant]
     Indication: HYPERTENSION
     Dosage: QD
     Route: 048
  11. LEVOTHYROXINE [Concomitant]
     Indication: AUTOIMMUNE THYROIDITIS
     Route: 048
  12. CLARITIN [Concomitant]
     Indication: SEASONAL ALLERGY
     Route: 048

REACTIONS (9)
  - AUTOIMMUNE DISORDER [None]
  - HOT FLUSH [None]
  - INJECTION SITE ERYTHEMA [None]
  - INJECTION SITE PAIN [None]
  - INJECTION SITE PRURITUS [None]
  - PAIN [None]
  - PRURITUS [None]
  - RASH [None]
  - WHITE BLOOD CELL COUNT DECREASED [None]
